FAERS Safety Report 11678707 (Version 1)
Quarter: 2015Q4

REPORT INFORMATION
  Report Type: Spontaneous
  Country: US (occurrence: US)
  Receive Date: 20151027
  Receipt Date: 20151027
  Transmission Date: 20160304
  Serious: No
  Sender: FDA-Public Use
  Company Number: US-ELI_LILLY_AND_COMPANY-US201007006068

PATIENT
  Age: 87 Year
  Sex: Female

DRUGS (3)
  1. FORTEO [Suspect]
     Active Substance: TERIPARATIDE
     Indication: OSTEOPOROSIS
     Dosage: 20 UG, DAILY (1/D)
     Dates: start: 20100706
  2. FORTEO [Suspect]
     Active Substance: TERIPARATIDE
     Dosage: 20 UG, DAILY (1/D)
  3. FORTEO [Suspect]
     Active Substance: TERIPARATIDE
     Dosage: 20 UG, DAILY (1/D)

REACTIONS (15)
  - Arthritis [Unknown]
  - Feeling abnormal [Unknown]
  - Muscle spasms [Unknown]
  - Balance disorder [Not Recovered/Not Resolved]
  - Blood pressure decreased [Recovered/Resolved]
  - Pain [Not Recovered/Not Resolved]
  - Neck pain [Unknown]
  - Nausea [Unknown]
  - Dizziness [Unknown]
  - Arthralgia [Not Recovered/Not Resolved]
  - Bone pain [Not Recovered/Not Resolved]
  - Back pain [Unknown]
  - Head discomfort [Not Recovered/Not Resolved]
  - Musculoskeletal pain [Unknown]
  - Headache [Recovering/Resolving]

NARRATIVE: CASE EVENT DATE: 20100716
